FAERS Safety Report 9895504 (Version 1)
Quarter: 2014Q1

REPORT INFORMATION
  Report Type: Spontaneous
  Country: US (occurrence: US)
  Receive Date: 20140213
  Receipt Date: 20140213
  Transmission Date: 20141002
  Serious: No
  Sender: FDA-Public Use
  Company Number: US-BRISTOL-MYERS SQUIBB COMPANY-19425891

PATIENT
  Age: 27 Year
  Sex: Female
  Weight: 82.54 kg

DRUGS (9)
  1. ABATACEPT SUBQ INJECTION 125MG/ML [Suspect]
     Dosage: 1DF:125MG/ML
     Route: 058
  2. OMEPRAZOLE [Concomitant]
     Dosage: CAP
  3. LOSARTAN POTASSIUM [Concomitant]
     Dosage: TAB
  4. LEFLUNOMIDE [Concomitant]
     Dosage: TAB
  5. ASPIRIN [Concomitant]
     Dosage: TAB
  6. SYNTHROID [Concomitant]
     Dosage: TAB
  7. PREDNISONE [Concomitant]
     Dosage: TAB
  8. FOLIC ACID [Concomitant]
     Dosage: TAB
  9. METHOTREXATE TABS [Concomitant]

REACTIONS (4)
  - Fatigue [Unknown]
  - Arthropathy [Unknown]
  - Somnolence [Unknown]
  - Decreased appetite [Unknown]
